FAERS Safety Report 5496673-5 (Version None)
Quarter: 2007Q4

REPORT INFORMATION
  Report Type: 
  Country: None (occurrence: None)
  Receive Date: 20071025
  Receipt Date: 20070629
  Transmission Date: 20080405
  Serious: Yes (Hospitalization)
  Sender: FDA-Public Use
  Company Number: A0661035A

PATIENT
  Age: 75 Year
  Sex: Female

DRUGS (3)
  1. ADVAIR DISKUS 100/50 [Suspect]
     Dosage: 1PUFF VARIABLE DOSE
     Route: 055
     Dates: start: 20070201
  2. BLOOD THINNER [Concomitant]
  3. WATER PILL [Concomitant]

REACTIONS (1)
  - COUGH [None]
